FAERS Safety Report 9648156 (Version 2)
Quarter: 2013Q4

REPORT INFORMATION
  Report Type: Spontaneous
  Country: JP (occurrence: JP)
  Receive Date: 20131028
  Receipt Date: 20131107
  Transmission Date: 20140711
  Serious: Yes (Hospitalization)
  Sender: FDA-Public Use
  Company Number: PHHY2013JP120790

PATIENT
  Sex: Male

DRUGS (5)
  1. EXELON PATCH [Suspect]
     Indication: DEMENTIA ALZHEIMER^S TYPE
     Dosage: 4.5 MG, DAILY
     Route: 062
     Dates: start: 201307
  2. EXELON PATCH [Suspect]
     Dosage: 9 MG, DAILY
     Route: 062
     Dates: start: 201308
  3. EXELON PATCH [Suspect]
     Dosage: 13.5 MG, DAILY
     Route: 062
     Dates: start: 201309
  4. EXELON PATCH [Suspect]
     Dosage: 18 MG, DAILY
     Route: 062
     Dates: start: 201310
  5. EXELON PATCH [Suspect]
     Dosage: 9 MG, DAILY
     Route: 062

REACTIONS (3)
  - Cervicobrachial syndrome [Recovering/Resolving]
  - Muscle contracture [Recovering/Resolving]
  - Local swelling [Unknown]
